FAERS Safety Report 7585803-7 (Version None)
Quarter: 2011Q3

REPORT INFORMATION
  Report Type: 
  Country: None (occurrence: None)
  Receive Date: 20110701
  Receipt Date: 20110628
  Transmission Date: 20111222
  Serious: Yes (Hospitalization, Other)
  Sender: FDA-Public Use
  Company Number: CN-BRISTOL-MYERS SQUIBB COMPANY-15863723

PATIENT
  Age: 70 Year
  Sex: Female
  Weight: 53 kg

DRUGS (4)
  1. BETALOC [Concomitant]
     Indication: CARDIAC DISORDER
     Dosage: 1DF=0.5 TABLET
     Route: 048
     Dates: start: 20110628
  2. LEUCOGEN [Concomitant]
     Indication: WHITE BLOOD CELL COUNT INCREASED
     Dosage: 1DF=1 TABLET
     Route: 048
     Dates: start: 20110609
  3. IRBESARTAN [Suspect]
     Indication: HYPERTENSION
     Dosage: 1DF=1 TABLET/D DEC10-19JUN11,1 TAB/D FROM 19JUN11,2 TABS/D
     Route: 048
     Dates: start: 20101201
  4. ALUMINIUM PHOSPHATE [Concomitant]
     Dosage: 1DF=1 POUCH COLLOIDAL ALUMINIUM PHOSPHATE GEL
     Route: 048
     Dates: start: 20110609

REACTIONS (2)
  - BLOOD PRESSURE INADEQUATELY CONTROLLED [None]
  - LACUNAR INFARCTION [None]
